FAERS Safety Report 9638600 (Version 1)
Quarter: 2013Q4

REPORT INFORMATION
  Report Type: Spontaneous
  Country: US (occurrence: US)
  Receive Date: 20131022
  Receipt Date: 20131022
  Transmission Date: 20140711
  Serious: No
  Sender: FDA-Public Use
  Company Number: US-BRISTOL-MYERS SQUIBB COMPANY-19467489

PATIENT
  Age: 62 Year
  Sex: Female
  Weight: 113.38 kg

DRUGS (8)
  1. ELIQUIS [Suspect]
     Indication: ATRIAL FIBRILLATION
  2. METOPROLOL TARTRATE [Concomitant]
  3. LEVOTHYROXINE [Concomitant]
  4. PROZAC [Concomitant]
  5. MELOXICAM [Concomitant]
  6. ASPIRIN [Concomitant]
  7. FISH OIL [Concomitant]
  8. MULTIVITAMIN [Concomitant]

REACTIONS (1)
  - Wound haemorrhage [Unknown]
